FAERS Safety Report 21153138 (Version 1)
Quarter: 2022Q3

REPORT INFORMATION
  Report Type: Spontaneous
  Country: US (occurrence: US)
  Receive Date: 20220731
  Receipt Date: 20220731
  Transmission Date: 20221026
  Serious: No
  Sender: FDA-Public Use
  Company Number: US-AMGEN-USASP2022126044

PATIENT
  Age: 4 Month
  Sex: Female

DRUGS (4)
  1. BEVACIZUMAB [Suspect]
     Active Substance: BEVACIZUMAB
     Indication: Retinopathy of prematurity
     Dosage: 0.625 MILLIGRAM IN 0.025 ML
  2. TRIESENCE [Concomitant]
     Active Substance: TRIAMCINOLONE ACETONIDE
     Indication: Retinopathy of prematurity
     Dosage: 2 MILLIGRAM, IN 0.05 MQ
     Route: 065
  3. TRIESENCE [Concomitant]
     Active Substance: TRIAMCINOLONE ACETONIDE
     Dosage: 20 MG IN 0.05 ML
     Route: 065
  4. TRIESENCE [Concomitant]
     Active Substance: TRIAMCINOLONE ACETONIDE
     Dosage: 2 MG IN 0.05 ML
     Route: 065

REACTIONS (6)
  - Drug effective for unapproved indication [Unknown]
  - Gene mutation [Unknown]
  - Developmental delay [Unknown]
  - Hypotonia [Unknown]
  - Hypertonia [Unknown]
  - Off label use [Unknown]
